FAERS Safety Report 21601015 (Version 1)
Quarter: 2022Q4

REPORT INFORMATION
  Report Type: Report from Study
  Country: US (occurrence: US)
  Receive Date: 20221116
  Receipt Date: 20221116
  Transmission Date: 20230112
  Serious: No
  Sender: FDA-Public Use
  Company Number: US-ABBVIE-4158002

PATIENT
  Sex: Female

DRUGS (1)
  1. HUMIRA [Suspect]
     Active Substance: ADALIMUMAB
     Indication: Product used for unknown indication
     Dosage: FORM STRENGTH: 40 MILLIGRAM
     Route: 058

REACTIONS (6)
  - Condition aggravated [Not Recovered/Not Resolved]
  - Skin disorder [Unknown]
  - Skin haemorrhage [Unknown]
  - Dry skin [Unknown]
  - Skin fissures [Unknown]
  - Helicobacter test positive [Unknown]
